FAERS Safety Report 6165351-1 (Version None)
Quarter: 2009Q2

REPORT INFORMATION
  Report Type: 
  Country: None (occurrence: None)
  Receive Date: 20090423
  Receipt Date: 20090421
  Transmission Date: 20091009
  Serious: Yes (Death, Life-Threatening, Hospitalization, Other)
  Sender: FDA-Public Use
  Company Number: GB-ABBOTT-09P-167-0569385-00

PATIENT
  Age: 49 Year
  Sex: Female

DRUGS (8)
  1. KALETRA [Suspect]
     Indication: HIV INFECTION
     Dates: start: 20090216, end: 20090301
  2. DARUNAVIR [Suspect]
     Indication: HIV INFECTION
     Route: 048
     Dates: start: 20090130, end: 20090216
  3. ETRAVIRINE [Suspect]
     Indication: HIV INFECTION
     Route: 048
     Dates: start: 20090129, end: 20090301
  4. RALTEGRAVIR [Suspect]
     Indication: HIV INFECTION
  5. RITONAVIR [Concomitant]
     Indication: DRUG USE FOR UNKNOWN INDICATION
  6. AMLODIPINE [Concomitant]
     Indication: DRUG USE FOR UNKNOWN INDICATION
  7. BENDROFLUMETHIAZIDE [Concomitant]
     Indication: DRUG USE FOR UNKNOWN INDICATION
  8. DICLOFENAC [Concomitant]
     Indication: DRUG USE FOR UNKNOWN INDICATION

REACTIONS (10)
  - ACUTE HAEMORRHAGIC CONJUNCTIVITIS [None]
  - ANAEMIA [None]
  - ANOREXIA [None]
  - ARTHRALGIA [None]
  - HEADACHE [None]
  - LIVER FUNCTION TEST ABNORMAL [None]
  - ORAL DISORDER [None]
  - TACHYCARDIA [None]
  - TEARFULNESS [None]
  - TOXIC EPIDERMAL NECROLYSIS [None]
